FAERS Safety Report 12301279 (Version 2)
Quarter: 2016Q2

REPORT INFORMATION
  Report Type: Spontaneous
  Country: US (occurrence: US)
  Receive Date: 20160425
  Receipt Date: 20160531
  Transmission Date: 20160815
  Serious: Yes (Hospitalization, Other)
  Sender: FDA-Public Use
  Company Number: US-BAYER-2016-078250

PATIENT
  Age: 35 Year
  Sex: Female
  Weight: 64.85 kg

DRUGS (3)
  1. WELLBUTRIN [Concomitant]
     Active Substance: BUPROPION HYDROCHLORIDE
     Indication: ANXIETY
     Dosage: UNK
     Dates: start: 2008
  2. AMBIEN [Concomitant]
     Active Substance: ZOLPIDEM TARTRATE
     Indication: INSOMNIA
     Dosage: UNK
     Dates: start: 2008
  3. MIRENA [Suspect]
     Active Substance: LEVONORGESTREL
     Indication: CONTRACEPTION
     Dosage: 20 MCG/24HR, CONT
     Route: 015
     Dates: start: 20130212, end: 20150629

REACTIONS (7)
  - Anxiety [None]
  - Uterine perforation [None]
  - Road traffic accident [None]
  - Abdominal pain lower [None]
  - Carpal tunnel syndrome [None]
  - Urinary tract infection [None]
  - Depression [None]

NARRATIVE: CASE EVENT DATE: 201308
